FAERS Safety Report 13848867 (Version 2)
Quarter: 2017Q3

REPORT INFORMATION
  Report Type: Spontaneous
  Country: JP (occurrence: JP)
  Receive Date: 20170809
  Receipt Date: 20170925
  Transmission Date: 20171127
  Serious: Yes (Hospitalization, Other)
  Sender: FDA-Public Use
  Company Number: JP-BRISTOL-MYERS SQUIBB COMPANY-BMS-2017-068879

PATIENT
  Age: 79 Year
  Sex: Female
  Weight: 46 kg

DRUGS (8)
  1. AMARYL [Concomitant]
     Active Substance: GLIMEPIRIDE
     Indication: PRODUCT USED FOR UNKNOWN INDICATION
     Route: 065
  2. IRBETAN [Concomitant]
     Active Substance: IRBESARTAN
     Indication: PRODUCT USED FOR UNKNOWN INDICATION
     Route: 065
  3. METGLUCO [Suspect]
     Active Substance: METFORMIN HYDROCHLORIDE
     Indication: PRODUCT USED FOR UNKNOWN INDICATION
     Dosage: 1500 MG, QD
     Route: 048
  4. ACTOS [Concomitant]
     Active Substance: PIOGLITAZONE HYDROCHLORIDE
     Indication: PRODUCT USED FOR UNKNOWN INDICATION
     Route: 065
  5. GASTER [Concomitant]
     Active Substance: FAMOTIDINE
     Indication: PRODUCT USED FOR UNKNOWN INDICATION
     Route: 065
  6. METGLUCO [Suspect]
     Active Substance: METFORMIN HYDROCHLORIDE
     Indication: DIABETES MELLITUS
     Dosage: 750 MG, QD
     Route: 048
  7. GLACTIV [Concomitant]
     Active Substance: SITAGLIPTIN
     Indication: PRODUCT USED FOR UNKNOWN INDICATION
     Route: 065
  8. GLUBES [Concomitant]
     Active Substance: MITIGLINIDE CALCIUM HYDRATE\VOGLIBOSE
     Indication: PRODUCT USED FOR UNKNOWN INDICATION
     Route: 065

REACTIONS (3)
  - Lactic acidosis [Recovering/Resolving]
  - Acute kidney injury [Recovering/Resolving]
  - Hypoglycaemia [Recovering/Resolving]

NARRATIVE: CASE EVENT DATE: 20160423
